FAERS Safety Report 6591511-1 (Version None)
Quarter: 2010Q1

REPORT INFORMATION
  Report Type: 
  Country: None (occurrence: None)
  Receive Date: 20100219
  Receipt Date: 20100208
  Transmission Date: 20100710
  Serious: Yes (Other)
  Sender: FDA-Public Use
  Company Number: GR-AMGEN-US393340

PATIENT
  Age: 36 Year
  Sex: Female

DRUGS (1)
  1. ENBREL [Suspect]
     Indication: PSORIATIC ARTHROPATHY
     Route: 058
     Dates: start: 20060101, end: 20100201

REACTIONS (3)
  - BLINDNESS [None]
  - DRUG EXPOSURE DURING PREGNANCY [None]
  - MULTIPLE SCLEROSIS [None]
